FAERS Safety Report 8380111-9 (Version None)
Quarter: 2012Q2

REPORT INFORMATION
  Report Type: 
  Country: None (occurrence: None)
  Receive Date: 20120523
  Receipt Date: 20120514
  Transmission Date: 20120825
  Serious: Yes (Hospitalization)
  Sender: FDA-Public Use
  Company Number: IT-ASTRAZENECA-2012SE31158

PATIENT
  Age: 23818 Day
  Sex: Female

DRUGS (3)
  1. OMEPRAZOLE [Suspect]
     Indication: ULCER
     Route: 048
     Dates: start: 20120309, end: 20120309
  2. METFFORMIN HYDROCHLORIDE [Concomitant]
     Indication: TYPE 2 DIABETES MELLITUS
     Route: 048
  3. LEVOTHYROXINE SODIUM [Concomitant]

REACTIONS (2)
  - RASH GENERALISED [None]
  - DYSPNOEA [None]
